FAERS Safety Report 9408127 (Version 1)
Quarter: 2013Q3

REPORT INFORMATION
  Report Type: Spontaneous
  Country: GB (occurrence: None)
  Receive Date: 20130716
  Receipt Date: 20130716
  Transmission Date: 20140515
  Serious: Yes (Death)
  Sender: FDA-Public Use
  Company Number: 1790859

PATIENT
  Age: 63 Year
  Sex: Female

DRUGS (8)
  1. CARBOPLATIN [Suspect]
     Indication: OVARIAN CANCER METASTATIC
     Dosage: AUC 5
  2. CARBOPLATIN [Suspect]
     Indication: NEOPLASM RECURRENCE
     Dosage: AUC 5
  3. CARBOPLATIN [Suspect]
     Indication: OVARIAN CANCER METASTATIC
     Dosage: AUC 5
  4. CARBOPLATIN [Suspect]
     Indication: NEOPLASM RECURRENCE
     Dosage: AUC 5
  5. PACLITAXEL [Suspect]
     Indication: OVARIAN CANCER METASTATIC
  6. PACLITAXEL [Suspect]
     Indication: NEOPLASM RECURRENCE
  7. PACLITAXEL [Suspect]
     Indication: OVARIAN CANCER METASTATIC
  8. PACLITAXEL [Suspect]
     Indication: NEOPLASM RECURRENCE

REACTIONS (20)
  - Tumour lysis syndrome [None]
  - Multi-organ failure [None]
  - Metastases to lung [None]
  - Neoplasm recurrence [None]
  - Ovarian cancer [None]
  - Lymphadenopathy [None]
  - Toxicity to various agents [None]
  - Pulmonary embolism [None]
  - Lower respiratory tract infection [None]
  - Hyperkalaemia [None]
  - Hypocalcaemia [None]
  - Hyperphosphataemia [None]
  - Metabolic acidosis [None]
  - Renal failure acute [None]
  - Cardiac failure [None]
  - Pulmonary oedema [None]
  - Respiratory failure [None]
  - Ischaemic hepatitis [None]
  - Hepatic vein thrombosis [None]
  - Intestinal infarction [None]
